FAERS Safety Report 18472949 (Version 1)
Quarter: 2020Q4

REPORT INFORMATION
  Report Type: Spontaneous
  Country: US (occurrence: US)
  Receive Date: 20201105
  Receipt Date: 20201105
  Transmission Date: 20210114
  Serious: Yes (Death)
  Sender: FDA-Public Use
  Company Number: None

PATIENT
  Age: 55 Year
  Sex: Male
  Weight: 74.7 kg

DRUGS (21)
  1. CETIRIZINE [Concomitant]
     Active Substance: CETIRIZINE HYDROCHLORIDE
  2. LORAZEPAM. [Concomitant]
     Active Substance: LORAZEPAM
  3. ABIRATERONE. [Suspect]
     Active Substance: ABIRATERONE ACETATE
     Indication: GENITAL CANCER MALE
     Route: 048
     Dates: start: 20200313, end: 20201101
  4. BICALUTAMIDE. [Concomitant]
     Active Substance: BICALUTAMIDE
  5. AZITHROMYCIN ANHYDROUS. [Concomitant]
     Active Substance: AZITHROMYCIN ANHYDROUS
  6. IBUPROFEN. [Concomitant]
     Active Substance: IBUPROFEN
  7. LACTULOSE. [Concomitant]
     Active Substance: LACTULOSE
  8. MORPHINE [Concomitant]
     Active Substance: MORPHINE
  9. OMEPRAZOLE. [Concomitant]
     Active Substance: OMEPRAZOLE
  10. ONDANSETRON [Concomitant]
     Active Substance: ONDANSETRON
  11. CALCIUM [Concomitant]
     Active Substance: CALCIUM
  12. ACETAMINOPHEN. [Concomitant]
     Active Substance: ACETAMINOPHEN
  13. ELIGARD [Concomitant]
     Active Substance: LEUPROLIDE ACETATE
  14. PHENYTOIN. [Concomitant]
     Active Substance: PHENYTOIN
  15. BISACODYL. [Concomitant]
     Active Substance: BISACODYL
  16. DEXAMETHASONE. [Concomitant]
     Active Substance: DEXAMETHASONE
  17. DOCUSATE SODIUM. [Concomitant]
     Active Substance: DOCUSATE SODIUM
  18. FISH OIL [Concomitant]
     Active Substance: FISH OIL
  19. FOLIC ACID. [Concomitant]
     Active Substance: FOLIC ACID
  20. SENNA [Concomitant]
     Active Substance: SENNA LEAF\SENNOSIDES\SENNOSIDES A AND B
  21. MAGNESIUM [Concomitant]
     Active Substance: MAGNESIUM

REACTIONS (1)
  - Metastasis [None]

NARRATIVE: CASE EVENT DATE: 20201101
